FAERS Safety Report 25892003 (Version 1)
Quarter: 2025Q4

REPORT INFORMATION
  Report Type: Spontaneous
  Country: US (occurrence: US)
  Receive Date: 20251007
  Receipt Date: 20251007
  Transmission Date: 20260117
  Serious: Yes (Hospitalization, Other)
  Sender: NOVO NORDISK
  Company Number: US-NOVOPROD-1532540

PATIENT
  Age: 62 Year
  Sex: Female

DRUGS (3)
  1. OZEMPIC [Suspect]
     Active Substance: SEMAGLUTIDE
     Indication: Type 2 diabetes mellitus
     Dosage: 0.25 MG, QW
     Route: 058
  2. OZEMPIC [Suspect]
     Active Substance: SEMAGLUTIDE
     Dosage: 2 MG, QW
     Route: 058
     Dates: start: 2025
  3. OZEMPIC [Suspect]
     Active Substance: SEMAGLUTIDE
     Dosage: TITRATION

REACTIONS (8)
  - Urinary tract infection [Recovered/Resolved]
  - Fall [Not Recovered/Not Resolved]
  - Shoulder fracture [Not Recovered/Not Resolved]
  - Blood glucose increased [Recovered/Resolved]
  - Blood glucose decreased [Unknown]
  - Appetite disorder [Not Recovered/Not Resolved]
  - Blood glucose increased [Not Recovered/Not Resolved]
  - Blood glucose increased [Unknown]

NARRATIVE: CASE EVENT DATE: 20250101
